FAERS Safety Report 6133159-9 (Version None)
Quarter: 2009Q1

REPORT INFORMATION
  Report Type: 
  Country: None (occurrence: None)
  Receive Date: 20090325
  Receipt Date: 20090325
  Transmission Date: 20090719
  Serious: No
  Sender: FDA-Public Use
  Company Number: None

PATIENT
  Age: 75 Year
  Sex: Male
  Weight: 58.9676 kg

DRUGS (1)
  1. SOTALOL HCL [Suspect]
     Indication: ATRIAL FIBRILLATION
     Dosage: 80 MG TWICE DAILY PO
     Route: 048
     Dates: start: 20081022, end: 20090102

REACTIONS (4)
  - DIZZINESS [None]
  - FATIGUE [None]
  - POSTNASAL DRIP [None]
  - RHINORRHOEA [None]
